FAERS Safety Report 21904423 (Version 1)
Quarter: 2023Q1

REPORT INFORMATION
  Report Type: Report from Study
  Country: US (occurrence: US)
  Receive Date: 20230124
  Receipt Date: 20230124
  Transmission Date: 20230418
  Serious: Yes (Other)
  Sender: FDA-Public Use
  Company Number: US-LUNDBECK-DKLU3057316

PATIENT
  Age: 59 Year

DRUGS (1)
  1. VYEPTI [Suspect]
     Active Substance: EPTINEZUMAB-JJMR
     Indication: Migraine
     Route: 041
     Dates: start: 20221208

REACTIONS (4)
  - Blindness unilateral [Recovered/Resolved]
  - Photophobia [Recovered/Resolved]
  - Typical aura without headache [Recovered/Resolved]
  - Ocular hyperaemia [Not Recovered/Not Resolved]
